FAERS Safety Report 5587890-4 (Version None)
Quarter: 2007Q4

REPORT INFORMATION
  Report Type: 
  Country: None (occurrence: None)
  Receive Date: 20071205
  Receipt Date: 20070621
  Transmission Date: 20080405
  Serious: Yes (Hospitalization)
  Sender: FDA-Public Use
  Company Number: HQWYE761622JUN07

PATIENT
  Age: 71 Year
  Sex: Female
  Weight: 63.56 kg

DRUGS (8)
  1. EFFEXOR XR [Suspect]
     Indication: DEPRESSION
     Dosage: 37.5 MG 1 X PER 1 DAY, ^TITRATED^, 112.5 MG, 150 MG 1 X PER 1 DAY, ORAL
     Route: 048
     Dates: start: 20070101, end: 20070101
  2. EFFEXOR XR [Suspect]
     Indication: DEPRESSION
     Dosage: 37.5 MG 1 X PER 1 DAY, ^TITRATED^, 112.5 MG, 150 MG 1 X PER 1 DAY, ORAL
     Route: 048
     Dates: start: 20070401, end: 20070101
  3. EFFEXOR XR [Suspect]
     Indication: DEPRESSION
     Dosage: 37.5 MG 1 X PER 1 DAY, ^TITRATED^, 112.5 MG, 150 MG 1 X PER 1 DAY, ORAL
     Route: 048
     Dates: start: 20070101
  4. TRILEPTAL [Suspect]
     Indication: DEPRESSION
     Dosage: UNKNOWN
     Dates: end: 20070601
  5. NORVASC [Concomitant]
  6. INDERAL [Concomitant]
  7. LISINOPRIL [Concomitant]
  8. ATIVAN [Concomitant]

REACTIONS (2)
  - BLOOD SODIUM DECREASED [None]
  - DRUG EFFECT DECREASED [None]
